FAERS Safety Report 13280520 (Version 4)
Quarter: 2017Q2

REPORT INFORMATION
  Report Type: Report from Study
  Country: None (occurrence: ES)
  Receive Date: 20170301
  Receipt Date: 20170502
  Transmission Date: 20170830
  Serious: Yes (Hospitalization)
  Sender: FDA-Public Use
  Company Number: ES-CLOVIS-2017-0338-0017

PATIENT
  Age: 72 Year
  Sex: Female
  Weight: 70.6 kg

DRUGS (7)
  1. CO-338 [Suspect]
     Active Substance: RUCAPARIB
     Indication: OVARIAN CANCER
     Route: 048
     Dates: start: 20160317, end: 20170215
  2. CO-338 [Suspect]
     Active Substance: RUCAPARIB
     Indication: BREAST CANCER
  3. CO-338 [Suspect]
     Active Substance: RUCAPARIB
     Indication: PANCREATIC CARCINOMA
  4. CO-338 [Suspect]
     Active Substance: RUCAPARIB
     Indication: PROSTATE CANCER
  5. CO-338 [Suspect]
     Active Substance: RUCAPARIB
     Indication: LUNG NEOPLASM MALIGNANT
  6. CO-338 [Suspect]
     Active Substance: RUCAPARIB
     Indication: MALIGNANT PERITONEAL NEOPLASM
  7. CO-338 [Suspect]
     Active Substance: RUCAPARIB
     Indication: COLORECTAL CANCER

REACTIONS (1)
  - Acute kidney injury [Recovered/Resolved]

NARRATIVE: CASE EVENT DATE: 20170216
